FAERS Safety Report 15664590 (Version 5)
Quarter: 2019Q4

REPORT INFORMATION
  Report Type: Report from Study
  Country: None (occurrence: BR)
  Receive Date: 20181128
  Receipt Date: 20191206
  Transmission Date: 20200122
  Serious: Yes (Other)
  Sender: FDA-Public Use
  Company Number: BR-ABBVIE-18K-020-2567530-00

PATIENT
  Age: 51 Year
  Sex: Female
  Weight: 64 kg

DRUGS (11)
  1. LIVALO [Suspect]
     Active Substance: PITAVASTATIN CALCIUM
     Indication: BLOOD CHOLESTEROL ABNORMAL
     Route: 065
  2. CRESTOR [Concomitant]
     Active Substance: ROSUVASTATIN CALCIUM
     Indication: BLOOD CHOLESTEROL ABNORMAL
  3. ESOMEPRAZOLE. [Concomitant]
     Active Substance: ESOMEPRAZOLE MAGNESIUM
     Indication: FUNCTIONAL GASTROINTESTINAL DISORDER
  4. METICORTEN [Concomitant]
     Active Substance: PREDNISONE
     Indication: RHEUMATOID ARTHRITIS
  5. PURAN [Concomitant]
     Active Substance: LEVOTHYROXINE SODIUM
     Indication: AUTOIMMUNE THYROIDITIS
  6. HUMIRA [Suspect]
     Active Substance: ADALIMUMAB
     Indication: RHEUMATOID ARTHRITIS
     Dosage: AROUND 2016 AND 2017
     Route: 058
     Dates: start: 2016
  7. STEZZA [Suspect]
     Active Substance: ESTRADIOL\NOMEGESTROL ACETATE
     Indication: CONTRACEPTION
     Route: 065
  8. VITAMIN D NOS [Concomitant]
     Active Substance: VITAMIN D NOS
     Indication: RHEUMATOID ARTHRITIS
  9. VITAMIN C [Concomitant]
     Active Substance: ASCORBIC ACID
     Indication: PRODUCT USED FOR UNKNOWN INDICATION
  10. HUMIRA [Suspect]
     Active Substance: ADALIMUMAB
     Indication: RHEUMATOID ARTHRITIS
     Route: 058
     Dates: start: 20181107, end: 20190123
  11. METICORTEN [Concomitant]
     Active Substance: PREDNISONE
     Indication: RHEUMATIC DISORDER
     Dosage: ALTERNATE FROM 10MG IN ONE DAY AND 5MG IN THE NEXT DAY?FREQUENCY AFTER BREAKFEAST

REACTIONS (18)
  - Corneal disorder [Unknown]
  - Product dispensing error [Unknown]
  - Blindness [Unknown]
  - Inflammation [Unknown]
  - Tooth fracture [Unknown]
  - Oral infection [Unknown]
  - Blood cholesterol abnormal [Unknown]
  - Bone disorder [Unknown]
  - Drug-induced liver injury [Recovered/Resolved]
  - Tooth injury [Unknown]
  - Granuloma [Unknown]
  - Face injury [Unknown]
  - Eye infection [Recovering/Resolving]
  - Tooth disorder [Not Recovered/Not Resolved]
  - Dental cyst [Recovered/Resolved]
  - Gingival recession [Unknown]
  - Infected cyst [Recovered/Resolved]
  - Facial pain [Unknown]

NARRATIVE: CASE EVENT DATE: 2016
